FAERS Safety Report 5767053-X (Version None)
Quarter: 2008Q2

REPORT INFORMATION
  Report Type: 
  Country: None (occurrence: None)
  Receive Date: 20080612
  Receipt Date: 20080610
  Transmission Date: 20081010
  Serious: Yes (Other)
  Sender: FDA-Public Use
  Company Number: A0713474A

PATIENT
  Sex: Female

DRUGS (1)
  1. ALLI [Suspect]

REACTIONS (9)
  - ADVERSE EVENT [None]
  - CYANOSIS [None]
  - FREQUENT BOWEL MOVEMENTS [None]
  - HYPOAESTHESIA ORAL [None]
  - OEDEMA PERIPHERAL [None]
  - PARAESTHESIA [None]
  - PYREXIA [None]
  - STEATORRHOEA [None]
  - WHITE BLOOD CELL COUNT INCREASED [None]
